FAERS Safety Report 23861061 (Version 1)
Quarter: 2024Q2

REPORT INFORMATION
  Report Type: Report from Study
  Country: US (occurrence: US)
  Receive Date: 20240516
  Receipt Date: 20240516
  Transmission Date: 20240716
  Serious: Yes (Hospitalization, Other)
  Sender: FDA-Public Use
  Company Number: US-SANDOZ-SDZ2023US007862

PATIENT
  Sex: Male
  Weight: 105.67 kg

DRUGS (7)
  1. TREPROSTINIL [Suspect]
     Active Substance: TREPROSTINIL
     Dosage: 61 NG/KG/MIN,STRENGTH(10MG/ML)
     Route: 058
     Dates: start: 20210628
  2. TREPROSTINIL [Suspect]
     Active Substance: TREPROSTINIL
     Indication: Pulmonary arterial hypertension
     Dosage: 61 NG/KG/MIN,STRENGTH(10MG/ML)
     Route: 058
     Dates: start: 20210628
  3. AMBRISENTAN [Concomitant]
     Active Substance: AMBRISENTAN
     Indication: Product used for unknown indication
     Route: 065
  4. AMBRISENTAN [Concomitant]
     Active Substance: AMBRISENTAN
     Indication: Product used for unknown indication
     Route: 065
  5. TADALAFIL [Concomitant]
     Active Substance: TADALAFIL
     Indication: Product used for unknown indication
     Route: 065
  6. TADALAFIL [Concomitant]
     Active Substance: TADALAFIL
     Indication: Product used for unknown indication
     Route: 065
  7. WARFARIN [Concomitant]
     Active Substance: WARFARIN
     Indication: Product used for unknown indication
     Route: 065

REACTIONS (7)
  - Syncope [Unknown]
  - Gastric haemorrhage [Unknown]
  - Blood loss anaemia [Unknown]
  - Infusion site erythema [Unknown]
  - Injection site pain [Unknown]
  - Infusion site inflammation [Recovering/Resolving]
  - Headache [Unknown]
